FAERS Safety Report 6964399-4 (Version None)
Quarter: 2010Q3

REPORT INFORMATION
  Report Type: 
  Country: None (occurrence: None)
  Receive Date: 20100903
  Receipt Date: 20100824
  Transmission Date: 20110219
  Serious: Yes (Other)
  Sender: FDA-Public Use
  Company Number: ZA-PFIZER INC-2010106833

PATIENT
  Age: 60 Year
  Sex: Male

DRUGS (1)
  1. DETRUSITOL SR [Suspect]
     Dosage: 4 MG, UNK
     Route: 048
     Dates: start: 20100101, end: 20100101

REACTIONS (3)
  - ANGIOEDEMA [None]
  - DYSPNOEA [None]
  - SPEECH DISORDER [None]
